FAERS Safety Report 15427603 (Version 1)
Quarter: 2018Q3

REPORT INFORMATION
  Report Type: Spontaneous
  Country: US (occurrence: US)
  Receive Date: 20180925
  Receipt Date: 20180925
  Transmission Date: 20181010
  Serious: Yes (Hospitalization)
  Sender: FDA-Public Use
  Company Number: US-VIFOR (INTERNATIONAL) INC.-VIT-2018-09273

PATIENT
  Age: 36 Year
  Sex: Male

DRUGS (1)
  1. VELTASSA [Suspect]
     Active Substance: PATIROMER
     Indication: BLOOD POTASSIUM INCREASED
     Route: 048
     Dates: start: 201808

REACTIONS (4)
  - Treatment noncompliance [Unknown]
  - Diarrhoea [Not Recovered/Not Resolved]
  - Faeces discoloured [Not Recovered/Not Resolved]
  - Blood potassium increased [Not Recovered/Not Resolved]

NARRATIVE: CASE EVENT DATE: 201808
